FAERS Safety Report 8890442 (Version 1)
Quarter: 2012Q4

REPORT INFORMATION
  Report Type: 
  Country: JP (occurrence: JP)
  Receive Date: 20121107
  Receipt Date: 20121107
  Transmission Date: 20130627
  Serious: Yes (Other)
  Sender: FDA-Public Use
  Company Number: JP-009507513-1211JPN000636

PATIENT
  Age: 80 Year

DRUGS (3)
  1. FAMOTIDINE [Suspect]
     Indication: PROPHYLAXIS
     Dosage: 40 mg, qd
  2. ASPIRIN [Concomitant]
     Dosage: UNK
  3. CLOPIDOGREL [Concomitant]
     Dosage: UNK

REACTIONS (2)
  - Gastric ulcer haemorrhage [Unknown]
  - Drug ineffective for unapproved indication [Unknown]
